FAERS Safety Report 15804041 (Version 1)
Quarter: 2019Q1

REPORT INFORMATION
  Report Type: Spontaneous
  Country: CZ (occurrence: CZ)
  Receive Date: 20190109
  Receipt Date: 20190109
  Transmission Date: 20190417
  Serious: Yes (Hospitalization, Other)
  Sender: FDA-Public Use
  Company Number: CZ-TAKEDA-2019TUS000659

PATIENT
  Age: 34 Year
  Sex: Male

DRUGS (4)
  1. ICLUSIG [Suspect]
     Active Substance: PONATINIB
     Indication: ACUTE LYMPHOCYTIC LEUKAEMIA
     Dosage: UNK
     Route: 065
  2. AMOXICILLIN. [Concomitant]
     Active Substance: AMOXICILLIN
     Indication: PRODUCT USED FOR UNKNOWN INDICATION
     Dosage: UNK
     Route: 065
  3. PARACETAMOL [Concomitant]
     Active Substance: ACETAMINOPHEN
     Indication: PRODUCT USED FOR UNKNOWN INDICATION
     Dosage: UNK
     Route: 065
  4. TASIGNA [Suspect]
     Active Substance: NILOTINIB
     Indication: CHRONIC MYELOID LEUKAEMIA
     Dosage: 200 MG, BID
     Route: 065
     Dates: start: 20110225, end: 20170726

REACTIONS (13)
  - Pyrexia [Recovering/Resolving]
  - Acute lymphocytic leukaemia [Recovered/Resolved]
  - C-reactive protein increased [Recovering/Resolving]
  - Thrombocytopenia [Recovering/Resolving]
  - Liver disorder [Recovering/Resolving]
  - Transaminases increased [Recovering/Resolving]
  - Myalgia [Recovering/Resolving]
  - Haematology test abnormal [Recovering/Resolving]
  - Fatigue [Unknown]
  - Musculoskeletal pain [Unknown]
  - Blood bilirubin increased [Unknown]
  - Bilirubin conjugated increased [Unknown]
  - Bone pain [Recovering/Resolving]

NARRATIVE: CASE EVENT DATE: 20130924
